FAERS Safety Report 13138554 (Version 1)
Quarter: 2017Q1

REPORT INFORMATION
  Report Type: Spontaneous
  Country: US (occurrence: US)
  Receive Date: 20170123
  Receipt Date: 20170123
  Transmission Date: 20170428
  Serious: No
  Sender: FDA-Public Use
  Company Number: US-UNITED THERAPEUTICS-UNT-2016-004081

PATIENT
  Age: 57 Year
  Sex: Female
  Weight: 81.6 kg

DRUGS (5)
  1. LETAIRIS [Suspect]
     Active Substance: AMBRISENTAN
     Indication: PULMONARY HYPERTENSION
     Dosage: 10 MG, QD
     Route: 065
     Dates: start: 20101018
  2. SILDENAFIL. [Concomitant]
     Active Substance: SILDENAFIL
     Indication: PRODUCT USED FOR UNKNOWN INDICATION
  3. ADEMPAS [Suspect]
     Active Substance: RIOCIGUAT
     Indication: PRODUCT USED FOR UNKNOWN INDICATION
     Dosage: 1MG, TID
     Route: 065
  4. LETAIRIS [Suspect]
     Active Substance: AMBRISENTAN
     Dosage: 5 MG, QD
     Route: 065
     Dates: start: 20150430
  5. REMODULIN [Suspect]
     Active Substance: TREPROSTINIL
     Indication: PULMONARY HYPERTENSION
     Dosage: 0.041 ?G/KG, CONTINUING
     Route: 058
     Dates: start: 20150708

REACTIONS (4)
  - Headache [Unknown]
  - Gastrooesophageal reflux disease [Unknown]
  - Dizziness postural [Unknown]
  - Nausea [Unknown]

NARRATIVE: CASE EVENT DATE: 201603
